FAERS Safety Report 10736703 (Version 7)
Quarter: 2015Q4

REPORT INFORMATION
  Report Type: Spontaneous
  Country: US (occurrence: US)
  Receive Date: 20150126
  Receipt Date: 20151228
  Transmission Date: 20160304
  Serious: No
  Sender: FDA-Public Use
  Company Number: US-PFIZER INC-2015028359

PATIENT
  Age: 47 Year
  Sex: Male
  Weight: 93 kg

DRUGS (6)
  1. SUTENT [Suspect]
     Active Substance: SUNITINIB MALATE
     Indication: GASTROINTESTINAL STROMAL TUMOUR
     Dosage: 37.5 MG DAILY WITH NO TREATMENT BREAKS
     Dates: start: 20141110
  2. MAGNESIUM [Concomitant]
     Active Substance: MAGNESIUM
     Dosage: UNK
  3. VITAMIN D3 [Concomitant]
     Active Substance: CHOLECALCIFEROL
     Dosage: UNK
  4. EMERGEN-C [Concomitant]
     Active Substance: VITAMINS
     Dosage: UNK
     Dates: start: 2011
  5. CALCIUM [Concomitant]
     Active Substance: CALCIUM
     Dosage: UNK
  6. L-LYSINE [Concomitant]
     Active Substance: LYSINE
     Dosage: UNK
     Dates: start: 2015

REACTIONS (14)
  - Weight decreased [Unknown]
  - Pallor [Unknown]
  - Gastric disorder [Unknown]
  - Depression [Recovered/Resolved]
  - Abdominal distension [Recovered/Resolved]
  - Dyspepsia [Recovered/Resolved]
  - Miliaria [Recovered/Resolved]
  - Hair colour changes [Recovered/Resolved]
  - Disease progression [Recovered/Resolved]
  - Dysgeusia [Recovered/Resolved]
  - Hernia [Unknown]
  - Fatigue [Recovered/Resolved]
  - Blister [Recovered/Resolved]
  - Gastrointestinal stromal tumour [Recovered/Resolved]

NARRATIVE: CASE EVENT DATE: 201411
